FAERS Safety Report 25731499 (Version 1)
Quarter: 2025Q3

REPORT INFORMATION
  Report Type: Spontaneous
  Country: MY (occurrence: MY)
  Receive Date: 20250827
  Receipt Date: 20250827
  Transmission Date: 20251020
  Serious: No
  Sender: ROCHE
  Company Number: MY-ROCHE-10000367614

PATIENT

DRUGS (6)
  1. EPOETIN BETA [Suspect]
     Active Substance: ERYTHROPOIETIN
     Indication: Product used for unknown indication
     Route: 065
  2. EPOETIN BETA [Suspect]
     Active Substance: ERYTHROPOIETIN
  3. EPOETIN BETA [Suspect]
     Active Substance: ERYTHROPOIETIN
  4. EPOETIN BETA [Suspect]
     Active Substance: ERYTHROPOIETIN
  5. EPOETIN BETA [Suspect]
     Active Substance: ERYTHROPOIETIN
  6. EPOETIN BETA [Suspect]
     Active Substance: ERYTHROPOIETIN

REACTIONS (2)
  - Product complaint [Unknown]
  - No adverse event [Unknown]
